FAERS Safety Report 7119811-7 (Version None)
Quarter: 2010Q4

REPORT INFORMATION
  Report Type: 
  Country: None (occurrence: None)
  Receive Date: 20101123
  Receipt Date: 20100927
  Transmission Date: 20110411
  Serious: No
  Sender: FDA-Public Use
  Company Number: US-BRISTOL-MYERS SQUIBB COMPANY-15258122

PATIENT
  Sex: Female

DRUGS (2)
  1. ONGLYZA [Suspect]
     Indication: DIABETES MELLITUS
     Dosage: 1/2 OF A 5 MG TABLET
     Route: 048
  2. METFORMIN HCL [Concomitant]
     Route: 048

REACTIONS (2)
  - HEADACHE [None]
  - MEDICATION ERROR [None]
